FAERS Safety Report 16617684 (Version 1)
Quarter: 2019Q3

REPORT INFORMATION
  Report Type: Spontaneous
  Country: DE (occurrence: DE)
  Receive Date: 20190723
  Receipt Date: 20190723
  Transmission Date: 20191004
  Serious: Yes (Life-Threatening, Hospitalization)
  Sender: FDA-Public Use
  Company Number: DE-TEVA-2019-DE-1079824

PATIENT
  Age: 39 Year
  Sex: Female
  Weight: 75 kg

DRUGS (22)
  1. VANCOMYCIN [Concomitant]
     Active Substance: VANCOMYCIN
     Dosage: 1 G, 1-0-1-0, SOLUTION FOR INJECTION / INFUSION
     Route: 042
  2. KALIUMCANRENOAT [Concomitant]
     Dosage: 200 MG, 1-1-0-0, VIALS
     Route: 042
  3. PARACETAMOL [Concomitant]
     Active Substance: ACETAMINOPHEN
     Dosage: 1000 MG, IF NECESSARY, SUPPOSITORIES
     Route: 054
  4. SULFASALAZINE DELAYED-RELEASE [Concomitant]
     Active Substance: SULFASALAZINE
     Dosage: 500 MG, 2-0-2-0, TABLETS
     Route: 048
  5. FUROSEMID [Concomitant]
     Active Substance: FUROSEMIDE
     Dosage: 40 MG, 2-2-2-0, TABLETS
     Route: 048
  6. IBUPROFEN. [Concomitant]
     Active Substance: IBUPROFEN
     Dosage: 600 MG, FOR PAIN UP TO 3X / DAY, TABLETS
     Route: 048
  7. MYCOPHENOLSAEURE [Suspect]
     Active Substance: MYCOPHENOLATE SODIUM
     Dosage: 360 MG, 1-0-1-0, TABLETS
     Route: 048
  8. PREDNISOLON [Suspect]
     Active Substance: PREDNISOLONE
     Dosage: 50 MG, 60 MG-0-0-0, SOLUTION FOR INJECTION / INFUSION
     Route: 042
  9. METAMIZOL [Concomitant]
     Active Substance: METAMIZOLE SODIUM
     Dosage: 2500 MG, 1-0-1-0, VIALS
     Route: 042
  10. METOCLOPRAMID [Concomitant]
     Active Substance: METOCLOPRAMIDE
     Dosage: 10 MG, IF NECESSARY 3X / DAY, AMPOULES
     Route: 042
  11. COLECALCIFEROL [Concomitant]
     Active Substance: CHOLECALCIFEROL
     Dosage: 0.5 MG, 10-10-10-10, DROPS
     Route: 048
  12. HYDROMORPHON [Concomitant]
     Active Substance: HYDROMORPHONE
     Dosage: 2.5 MG, 4X DAILY IF NECESSARY, CAPSULES
     Route: 048
  13. PANTOPRAZOL [Concomitant]
     Active Substance: PANTOPRAZOLE SODIUM
     Dosage: 40 MG, 1-0-0-0, TABLETS
     Route: 048
  14. DABIGATRAN [Concomitant]
     Active Substance: DABIGATRAN
     Dosage: 150 MG, 1-0-1-0, CAPSULES
     Route: 048
  15. MOLSIDOMIN [Concomitant]
     Active Substance: MOLSIDOMINE
     Dosage: 8 MG, 0-0-1-0, TABLETS
     Route: 048
  16. LENOGRASTIM [Concomitant]
     Active Substance: LENOGRASTIM
     Dosage: 33600000 IE, ACCORDING TO SCHEME / LEUKOS WITH TAVEGIL AND RANITIDINE AS PREMEDICATION, SOLUTION FOR
     Route: 058
  17. HYDROCHLOROTHIAZID [Concomitant]
     Active Substance: HYDROCHLOROTHIAZIDE
     Dosage: 25 MG, 1-1-0-0, TABLETS
     Route: 048
  18. IBUPROFEN. [Concomitant]
     Active Substance: IBUPROFEN
     Dosage: 600 MG, IF NECESSARY 2X DAILY, TABLETS
     Route: 048
  19. ONDANSETRON [Concomitant]
     Active Substance: ONDANSETRON
     Dosage: 8 MG, IF NECESSARY 3X / DAY, TABLETS
     Route: 048
  20. FOLS?URE [Concomitant]
     Dosage: 5 MG, 1-0-0-0, TABLETS
     Route: 048
  21. HYDROMORPHON [Concomitant]
     Active Substance: HYDROMORPHONE
     Dosage: 8 MG, 1-1-1-1, CAPSULES
     Route: 048
  22. CIPROFLOXACIN. [Concomitant]
     Active Substance: CIPROFLOXACIN
     Dosage: 400 MG, 1-0-1-0, SOLUTION FOR INJECTION / INFUSION
     Route: 042

REACTIONS (4)
  - Pain [Unknown]
  - Delirium [Unknown]
  - General physical health deterioration [Unknown]
  - Disturbance in attention [Unknown]
